FAERS Safety Report 18880633 (Version 1)
Quarter: 2021Q1

REPORT INFORMATION
  Report Type: Report from Study
  Country: None (occurrence: US)
  Receive Date: 20210212
  Receipt Date: 20210212
  Transmission Date: 20210420
  Serious: Yes (Other)
  Sender: FDA-Public Use
  Company Number: US-ABBVIE-20K-163-3434705-00

PATIENT
  Age: 47 Year
  Sex: Female

DRUGS (4)
  1. DICLOFENAC [Concomitant]
     Active Substance: DICLOFENAC
  2. DICLOFENAC [Concomitant]
     Active Substance: DICLOFENAC
     Indication: PRODUCT USED FOR UNKNOWN INDICATION
  3. HUMIRA [Suspect]
     Active Substance: ADALIMUMAB
     Route: 058
     Dates: start: 2020
  4. HUMIRA [Suspect]
     Active Substance: ADALIMUMAB
     Indication: ANKYLOSING SPONDYLITIS
     Route: 058
     Dates: start: 20200421, end: 2020

REACTIONS (21)
  - Contusion [Unknown]
  - Ankylosing spondylitis [Not Recovered/Not Resolved]
  - Spinal disorder [Unknown]
  - Photophobia [Unknown]
  - Gastric disorder [Unknown]
  - Autoimmune disorder [Unknown]
  - Spinal disorder [Unknown]
  - Injection site bruising [Unknown]
  - Adverse food reaction [Unknown]
  - Arthritis [Recovering/Resolving]
  - Arthralgia [Unknown]
  - Uterine polyp [Unknown]
  - Gait disturbance [Unknown]
  - Loss of personal independence in daily activities [Unknown]
  - Musculoskeletal stiffness [Unknown]
  - Discomfort [Unknown]
  - Headache [Not Recovered/Not Resolved]
  - Spinal pain [Unknown]
  - General physical condition abnormal [Recovering/Resolving]
  - Mobility decreased [Not Recovered/Not Resolved]
  - Pain in extremity [Not Recovered/Not Resolved]

NARRATIVE: CASE EVENT DATE: 2020
